FAERS Safety Report 22962634 (Version 3)
Quarter: 2023Q4

REPORT INFORMATION
  Report Type: Spontaneous
  Country: JP (occurrence: JP)
  Receive Date: 20230920
  Receipt Date: 20231221
  Transmission Date: 20240110
  Serious: Yes (Death)
  Sender: FDA-Public Use
  Company Number: JP-MSD-2307JPN003855J

PATIENT
  Age: 72 Year
  Sex: Female

DRUGS (1)
  1. KEYTRUDA [Suspect]
     Active Substance: PEMBROLIZUMAB
     Indication: Colorectal cancer
     Dosage: 200 MILLIGRAM, Q3W
     Route: 041
     Dates: start: 20230707, end: 20230707

REACTIONS (2)
  - Cardiovascular disorder [Fatal]
  - Pyrexia [Unknown]

NARRATIVE: CASE EVENT DATE: 20230701
